FAERS Safety Report 19647447 (Version 1)
Quarter: 2021Q3

REPORT INFORMATION
  Report Type: Report from Study
  Country: EG (occurrence: EG)
  Receive Date: 20210802
  Receipt Date: 20210802
  Transmission Date: 20211014
  Serious: Yes (Other)
  Sender: FDA-Public Use
  Company Number: NVSC2021EG171635

PATIENT
  Age: 63 Year
  Sex: Female

DRUGS (2)
  1. ENTRESTO [Suspect]
     Active Substance: SACUBITRIL\VALSARTAN
     Dosage: 0.5 DF, BID (200 MG TABLET)
     Route: 048
     Dates: start: 20200918
  2. ENTRESTO [Suspect]
     Active Substance: SACUBITRIL\VALSARTAN
     Indication: CARDIAC FAILURE
     Dosage: 0.5 DF, BID (100 MG TABLET)
     Route: 048
     Dates: start: 20200817, end: 20200917

REACTIONS (9)
  - Dyspnoea [Recovered/Resolved]
  - Pain [Recovered/Resolved]
  - Fatigue [Recovered/Resolved]
  - Chest pain [Not Recovered/Not Resolved]
  - Wrong technique in product usage process [Unknown]
  - Lethargy [Recovered/Resolved]
  - Abdominal pain [Not Recovered/Not Resolved]
  - Polyuria [Not Recovered/Not Resolved]
  - Vomiting [Not Recovered/Not Resolved]

NARRATIVE: CASE EVENT DATE: 20200817
